FAERS Safety Report 4681142-2 (Version None)
Quarter: 2005Q2

REPORT INFORMATION
  Report Type: 
  Country: None (occurrence: None)
  Receive Date: 20050602
  Receipt Date: 20050523
  Transmission Date: 20051028
  Serious: Yes (Death)
  Sender: FDA-Public Use
  Company Number: GXKR2005GB00926

PATIENT
  Age: 78 Year
  Sex: Male

DRUGS (11)
  1. PARACETAMOL+CODEINE (NGX)(ACETAMINOPHEN (PARACETAMOL), CODEINE PHOSPHA [Suspect]
  2. SIMVASTATIN [Suspect]
  3. FUROSEMIDE [Suspect]
  4. ACETYLSALICYLIC ACID (NGX) (ACETYLSALICYLIC ACID) [Suspect]
  5. SALBUTAMOL (NGX) (SALBUTAMOL) [Suspect]
  6. ISORBIDE MONONITRATE (ISOSORBIDE MONONITRATE) [Suspect]
  7. BISOPROLOL (NGX) (BISOPROLOL) [Suspect]
  8. SPIRIVA [Suspect]
  9. NICORANDIL (NICORANDIL) [Concomitant]
  10. RABEPRAZOLE SODIUM [Suspect]
  11. SERETIDE (FLUTICASONE PROPIONATE) [Suspect]

REACTIONS (2)
  - LEFT VENTRICULAR FAILURE [None]
  - MYOCARDIAL ISCHAEMIA [None]
